FAERS Safety Report 17340370 (Version 1)
Quarter: 2020Q1

REPORT INFORMATION
  Report Type: Spontaneous
  Country: US (occurrence: US)
  Receive Date: 20200129
  Receipt Date: 20200129
  Transmission Date: 20200409
  Serious: No
  Sender: FDA-Public Use
  Company Number: US-ALLERGAN-1919992US

PATIENT
  Age: 61 Year
  Sex: Female
  Weight: 68.93 kg

DRUGS (2)
  1. VITAMIN D                          /00318501/ [Concomitant]
     Active Substance: CHOLECALCIFEROL
     Indication: SUPPLEMENTATION THERAPY
  2. BOTOX COSMETIC [Suspect]
     Active Substance: ONABOTULINUMTOXINA
     Indication: SKIN WRINKLING
     Dosage: UNK, SINGLE
     Route: 030
     Dates: start: 201712, end: 201712

REACTIONS (1)
  - Eyelid ptosis [Recovered/Resolved]

NARRATIVE: CASE EVENT DATE: 201712
